FAERS Safety Report 7260927-2 (Version None)
Quarter: 2011Q1

REPORT INFORMATION
  Report Type: 
  Country: None (occurrence: None)
  Receive Date: 20110128
  Receipt Date: 20110128
  Transmission Date: 20110831
  Serious: Yes (Other)
  Sender: FDA-Public Use
  Company Number: None

PATIENT
  Age: 42 Year
  Sex: Female
  Weight: 68.0396 kg

DRUGS (1)
  1. TRIAD ALCOHOL WIPES [Suspect]
     Dosage: SWAB ONCE A DAY EVERY SINGLE DAY
     Dates: start: 20031013, end: 20110123

REACTIONS (7)
  - PAIN [None]
  - ASTHENIA [None]
  - RASH [None]
  - HEADACHE [None]
  - CONTUSION [None]
  - ABDOMINAL PAIN UPPER [None]
  - INFLUENZA LIKE ILLNESS [None]
